FAERS Safety Report 8028460-8 (Version None)
Quarter: 2012Q1

REPORT INFORMATION
  Report Type: 
  Country: None (occurrence: None)
  Receive Date: 20120106
  Receipt Date: 20120105
  Transmission Date: 20120608
  Serious: Yes (Other)
  Sender: FDA-Public Use
  Company Number: US-ROCHE-776796

PATIENT
  Sex: Female
  Weight: 61.2 kg

DRUGS (1)
  1. ACCUTANE [Suspect]
     Indication: ACNE
     Route: 065
     Dates: start: 19930827, end: 19940201

REACTIONS (11)
  - HAEMORRHOIDS [None]
  - LIP DRY [None]
  - DEPRESSION [None]
  - ILEAL PERFORATION [None]
  - INTESTINAL OBSTRUCTION [None]
  - ANAL FISTULA [None]
  - IRRITABLE BOWEL SYNDROME [None]
  - CROHN'S DISEASE [None]
  - INFLAMMATORY BOWEL DISEASE [None]
  - BLOOD CHOLESTEROL INCREASED [None]
  - ANAL ABSCESS [None]
